FAERS Safety Report 7108905-8 (Version None)
Quarter: 2010Q4

REPORT INFORMATION
  Report Type: 
  Country: None (occurrence: None)
  Receive Date: 20101117
  Receipt Date: 20101007
  Transmission Date: 20110411
  Serious: Yes (Other)
  Sender: FDA-Public Use
  Company Number: US-BAXTER-2010BH000858

PATIENT
  Age: 44 Year
  Sex: Female
  Weight: 81 kg

DRUGS (35)
  1. HEPARIN SODIUM INJECTION [Suspect]
     Indication: ARTERIAL BYPASS OPERATION
     Route: 042
     Dates: start: 20071016, end: 20071016
  2. HEPARIN SODIUM INJECTION [Suspect]
     Indication: VASCULAR GRAFT
     Route: 042
     Dates: start: 20071016, end: 20071016
  3. HEPARIN SODIUM INJECTION [Suspect]
     Route: 061
     Dates: start: 20071016, end: 20071016
  4. HEPARIN SODIUM INJECTION [Suspect]
     Route: 061
     Dates: start: 20071016, end: 20071016
  5. HEPARIN SODIUM INJECTION [Suspect]
     Route: 042
     Dates: start: 20071017, end: 20071017
  6. HEPARIN SODIUM INJECTION [Suspect]
     Route: 042
     Dates: start: 20071017, end: 20071017
  7. HEPARIN SODIUM INJECTION [Suspect]
     Route: 042
     Dates: start: 20071017, end: 20071017
  8. HEPARIN SODIUM INJECTION [Suspect]
     Route: 042
     Dates: start: 20071017, end: 20071017
  9. HEPARIN SODIUM INJECTION [Suspect]
     Route: 061
     Dates: start: 20071017, end: 20071017
  10. HEPARIN SODIUM INJECTION [Suspect]
     Route: 061
     Dates: start: 20071017, end: 20071017
  11. HEPARIN SODIUM INJECTION [Suspect]
     Route: 061
     Dates: start: 20071017, end: 20071017
  12. HEPARIN SODIUM INJECTION [Suspect]
     Route: 061
     Dates: start: 20071017, end: 20071017
  13. HEPARIN SODIUM INJECTION [Suspect]
     Route: 042
     Dates: start: 20071031, end: 20071031
  14. HEPARIN SODIUM INJECTION [Suspect]
     Route: 042
     Dates: start: 20071031, end: 20071031
  15. HEPARIN SODIUM INJECTION [Suspect]
     Route: 042
     Dates: start: 20071031, end: 20071031
  16. HEPARIN SODIUM INJECTION [Suspect]
     Route: 042
     Dates: start: 20071031, end: 20071031
  17. AVANDAMET [Concomitant]
     Indication: PRODUCT USED FOR UNKNOWN INDICATION
     Route: 048
  18. ASPIRIN [Concomitant]
     Indication: PRODUCT USED FOR UNKNOWN INDICATION
     Route: 048
  19. WARFARIN [Concomitant]
     Indication: PRODUCT USED FOR UNKNOWN INDICATION
     Route: 048
  20. LIPITOR [Concomitant]
     Indication: PRODUCT USED FOR UNKNOWN INDICATION
     Route: 048
  21. NEURONTIN [Concomitant]
     Indication: PRODUCT USED FOR UNKNOWN INDICATION
     Route: 048
  22. GLUCOTROL XL [Concomitant]
     Indication: PRODUCT USED FOR UNKNOWN INDICATION
     Route: 048
  23. CALCIUM [Concomitant]
     Indication: PRODUCT USED FOR UNKNOWN INDICATION
     Route: 048
  24. BLACK COHOSH [Concomitant]
     Indication: PRODUCT USED FOR UNKNOWN INDICATION
     Route: 048
  25. LORTAB [Concomitant]
     Indication: PRODUCT USED FOR UNKNOWN INDICATION
     Route: 048
  26. MORPHINE SULFATE [Concomitant]
     Indication: PRODUCT USED FOR UNKNOWN INDICATION
     Route: 048
  27. TIOTROPIUM BROMIDE [Concomitant]
     Indication: PRODUCT USED FOR UNKNOWN INDICATION
     Route: 048
  28. ALBUTEROL [Concomitant]
     Indication: PRODUCT USED FOR UNKNOWN INDICATION
     Route: 048
  29. ADVAIR DISKUS 100/50 [Concomitant]
     Indication: PRODUCT USED FOR UNKNOWN INDICATION
     Route: 048
  30. ROBAXIN [Concomitant]
     Indication: PRODUCT USED FOR UNKNOWN INDICATION
     Route: 048
  31. LIMBREL [Concomitant]
     Indication: PRODUCT USED FOR UNKNOWN INDICATION
     Route: 048
  32. PREGABALIN [Concomitant]
     Indication: PRODUCT USED FOR UNKNOWN INDICATION
     Route: 048
  33. PANTOPRAZOLE [Concomitant]
     Indication: PRODUCT USED FOR UNKNOWN INDICATION
     Route: 048
  34. WARFARIN [Concomitant]
     Route: 048
  35. LISINOPRIL [Concomitant]
     Indication: PRODUCT USED FOR UNKNOWN INDICATION
     Route: 048

REACTIONS (20)
  - AMNESIA [None]
  - COMA [None]
  - COMPARTMENT SYNDROME [None]
  - DRUG HYPERSENSITIVITY [None]
  - GASTRIC ULCER HAEMORRHAGE [None]
  - LACTIC ACIDOSIS [None]
  - MULTI-ORGAN FAILURE [None]
  - PANCREATITIS [None]
  - PEDAL PULSE ABNORMAL [None]
  - PEDAL PULSE DECREASED [None]
  - PERONEAL NERVE PALSY [None]
  - RENAL ARTERY OCCLUSION [None]
  - RENAL FAILURE ACUTE [None]
  - RENAL INFARCT [None]
  - RESPIRATORY FAILURE [None]
  - RHABDOMYOLYSIS [None]
  - SEPSIS [None]
  - SKIN NECROSIS [None]
  - THROMBOCYTOPENIA [None]
  - THROMBOSIS [None]
